FAERS Safety Report 4498926-6 (Version None)
Quarter: 2004Q4

REPORT INFORMATION
  Report Type: 
  Country: None (occurrence: None)
  Receive Date: 20041108
  Receipt Date: 20041027
  Transmission Date: 20050328
  Serious: Yes (Death, Hospitalization, Other)
  Sender: FDA-Public Use
  Company Number: PL-2004-034462

PATIENT
  Age: 77 Year
  Sex: Female

DRUGS (17)
  1. FLUDARA(FLUDARABINE PHOSPHATE) INJECTION [Suspect]
     Indication: CHRONIC LYMPHOCYTIC LEUKAEMIA
     Dosage: 20 MG DAYS 5, 6, 7 Q28D, INTRAVENOUS
     Route: 042
     Dates: start: 20030204, end: 20030326
  2. CYCLOPHOSPHAMIDE [Suspect]
     Indication: CHRONIC LYMPHOCYTIC LEUKAEMIA
     Dosage: 200 MG DAYS 5, 6, 7 Q28D, INTRAVENOUS
     Route: 042
     Dates: start: 20030204, end: 20030326
  3. GENSENSE (BCL-2 ANTISENSE OLIGONUCLEOTIDE) [Suspect]
     Indication: CHRONIC LYMPHOCYTIC LEUKAEMIA
     Dosage: 177 MG DAYS 1- 7 Q28D, INTRAVENOUS
     Route: 042
     Dates: start: 20030131, end: 20030326
  4. FUROSEMIDE [Concomitant]
  5. METOPROLOL TARTRATE [Concomitant]
  6. CAPTOPRIL [Concomitant]
  7. KETOCONAZOLE [Concomitant]
  8. ACYCLOVIR [Concomitant]
  9. AMOXICILLIN [Concomitant]
  10. EPOETIN ALFA (EPOETIN ALFA) [Concomitant]
  11. FILGRASTIM (FILGRASTIM) [Concomitant]
  12. ALLOPURINOL [Concomitant]
  13. NIFUROXAZIDE (NIFUROXAZIDE) [Concomitant]
  14. LOPERAMIDE HCL [Concomitant]
  15. TRAMADOL HCL [Concomitant]
  16. POTASSIUM (POTASSIUM) [Concomitant]
  17. SODIUM CHLORIDE 0.9% [Concomitant]

REACTIONS (13)
  - ATELECTASIS [None]
  - BLOOD PRESSURE DECREASED [None]
  - BRONCHOPULMONARY ASPERGILLOSIS [None]
  - CEREBRAL THROMBOSIS [None]
  - CHRONIC LYMPHOCYTIC LEUKAEMIA [None]
  - CLOSTRIDIUM COLITIS [None]
  - CORONARY ARTERY ATHEROSCLEROSIS [None]
  - DYSPNOEA AT REST [None]
  - GENERAL PHYSICAL HEALTH DETERIORATION [None]
  - MALIGNANT NEOPLASM PROGRESSION [None]
  - PLEURAL EFFUSION [None]
  - PNEUMONITIS [None]
  - PULMONARY EMBOLISM [None]
